FAERS Safety Report 16625937 (Version 1)
Quarter: 2019Q3

REPORT INFORMATION
  Report Type: Spontaneous
  Country: CH (occurrence: CH)
  Receive Date: 20190724
  Receipt Date: 20190724
  Transmission Date: 20191004
  Serious: Yes (Life-Threatening, Hospitalization)
  Sender: FDA-Public Use
  Company Number: CH-PFIZER INC-2019316643

PATIENT
  Age: 70 Year
  Sex: Female

DRUGS (7)
  1. PANTOPRAZOLE [Suspect]
     Active Substance: PANTOPRAZOLE
     Dosage: 200MG IN TOTAL
     Route: 048
     Dates: start: 20181202
  2. ACIDUM FOLICUM STREULI [Suspect]
     Active Substance: FOLIC ACID
     Dosage: 85MG IN TOTAL
     Route: 048
     Dates: start: 20181202
  3. CANDESARTAN. [Suspect]
     Active Substance: CANDESARTAN
     Dosage: 56MG IN TOTAL
     Route: 048
     Dates: start: 20181202
  4. SINQUAN [Suspect]
     Active Substance: DOXEPIN HYDROCHLORIDE
     Dosage: 375MG IN TOTAL
     Route: 048
     Dates: start: 20181202
  5. TRITTICO [Suspect]
     Active Substance: TRAZODONE HYDROCHLORIDE
     Dosage: 1500MG IN TOTAL
     Route: 048
     Dates: start: 20181202
  6. LANTUS [Concomitant]
     Active Substance: INSULIN GLARGINE
     Dosage: 100 IU/1 ML, 0-0-12-0
     Route: 058
  7. INEGY [Concomitant]
     Active Substance: EZETIMIBE\SIMVASTATIN
     Dosage: 10/20 MG, 1-0-0-0
     Route: 048

REACTIONS (4)
  - Cognitive disorder [Recovered/Resolved]
  - Poisoning [Recovered/Resolved]
  - Intentional overdose [Unknown]
  - Suicidal ideation [Unknown]

NARRATIVE: CASE EVENT DATE: 20181202
